FAERS Safety Report 9327797 (Version 1)
Quarter: 2013Q2

REPORT INFORMATION
  Report Type: Spontaneous
  Country: US (occurrence: US)
  Receive Date: 20130604
  Receipt Date: 20130604
  Transmission Date: 20140414
  Serious: No
  Sender: FDA-Public Use
  Company Number: US-AMGEN-USASP2013036018

PATIENT
  Age: 42 Year
  Sex: Female
  Weight: 49.89 kg

DRUGS (4)
  1. ENBREL [Suspect]
     Indication: RHEUMATOID ARTHRITIS
     Dosage: 50 MG, QWK
     Route: 058
     Dates: start: 20130501
  2. OMEPRAZOLE [Concomitant]
     Dosage: 20 MG 1 CAPSULE EVERY DAY, QD
     Route: 048
     Dates: start: 20120611
  3. PREDNISONE [Concomitant]
     Dosage: 5 MG 4 TABLET DAILY
     Route: 048
     Dates: start: 20130325
  4. ERGOCALCIFEROL [Concomitant]
     Dosage: 50000 UNIT, 2 TIMES/WK
     Route: 048

REACTIONS (4)
  - Pain [Not Recovered/Not Resolved]
  - Dysphonia [Not Recovered/Not Resolved]
  - Musculoskeletal stiffness [Not Recovered/Not Resolved]
  - Nasopharyngitis [Not Recovered/Not Resolved]
